FAERS Safety Report 4446111-6 (Version None)
Quarter: 2004Q3

REPORT INFORMATION
  Report Type: 
  Country: None (occurrence: None)
  Receive Date: 20040907
  Receipt Date: 20040617
  Transmission Date: 20050211
  Serious: Yes (Hospitalization)
  Sender: FDA-Public Use
  Company Number: US-ROCHE-371545

PATIENT
  Age: 47 Year
  Sex: Female
  Weight: 68 kg

DRUGS (5)
  1. PEGASYS [Suspect]
     Indication: HEPATITIS C
     Dosage: ON HOLD
     Route: 058
     Dates: start: 20040601, end: 20040615
  2. PEGASYS [Suspect]
     Route: 058
     Dates: start: 20040624
  3. COPEGUS [Suspect]
     Indication: HEPATITIS C
     Dosage: DOSAGE REGIMEN WAS REPORTED TO BE 2 TABLETS IN THE MORNING, 3 TABLETS IN THE EVENING. ALSO REPORTED+
     Route: 048
     Dates: start: 20040601, end: 20040615
  4. COPEGUS [Suspect]
     Dosage: DOSE REPORTED AS 2 AM AND 3 PM. REPORTED AS BEING ON HOLD.
     Route: 048
     Dates: start: 20040624
  5. REMERON [Concomitant]
     Indication: DEPRESSION
     Dosage: DOSAGE REGIMEN WAS REPORTED TO BE 1 HS. TAKES 15 MG AT BEDTIME.
     Dates: start: 20040515

REACTIONS (7)
  - CONFUSIONAL STATE [None]
  - EPISTAXIS [None]
  - INSOMNIA [None]
  - NAUSEA [None]
  - PANCREATITIS [None]
  - PLATELET COUNT DECREASED [None]
  - PYREXIA [None]
